FAERS Safety Report 13535899 (Version 2)
Quarter: 2017Q2

REPORT INFORMATION
  Report Type: Spontaneous
  Country: US (occurrence: US)
  Receive Date: 20170511
  Receipt Date: 20170515
  Transmission Date: 20170830
  Serious: No
  Sender: FDA-Public Use
  Company Number: US-BAYER-2017-089431

PATIENT

DRUGS (1)
  1. CLIMARA PRO [Suspect]
     Active Substance: ESTRADIOL\LEVONORGESTREL
     Dosage: 0.045/0.015 MG PER DAY
     Route: 062

REACTIONS (3)
  - Product adhesion issue [None]
  - Device breakage [None]
  - Administration site discomfort [None]
